FAERS Safety Report 9831936 (Version 3)
Quarter: 2014Q1

REPORT INFORMATION
  Report Type: Report from Study
  Country: US (occurrence: US)
  Receive Date: 20140121
  Receipt Date: 20140214
  Transmission Date: 20141002
  Serious: Yes (Other)
  Sender: FDA-Public Use
  Company Number: US-ASTELLAS-2014US000404

PATIENT
  Age: 62 Year
  Sex: Male
  Weight: 83 kg

DRUGS (4)
  1. ERLOTINIB TABLET [Suspect]
     Indication: NON-SMALL CELL LUNG CANCER
     Dosage: 150 MG, UID/QD
     Route: 048
     Dates: start: 20130904, end: 20130921
  2. ERLOTINIB TABLET [Suspect]
     Dosage: 100 MG, UID/QD
     Route: 048
     Dates: start: 20131014, end: 20131101
  3. CABOZANTINIB [Suspect]
     Indication: NON-SMALL CELL LUNG CANCER
     Dosage: 40 MG, UID/QD
     Route: 048
     Dates: start: 20130904, end: 20130921
  4. CABOZANTINIB [Suspect]
     Dosage: 20 MG, UID/QD
     Route: 048
     Dates: start: 20131014, end: 20131101

REACTIONS (3)
  - Rash maculo-papular [Recovering/Resolving]
  - Amylase increased [Recovering/Resolving]
  - Malignant neoplasm progression [Unknown]
